FAERS Safety Report 5993873-2 (Version None)
Quarter: 2008Q4

REPORT INFORMATION
  Report Type: 
  Country: None (occurrence: None)
  Receive Date: 20081212
  Receipt Date: 20081203
  Transmission Date: 20090506
  Serious: Yes (Death, Hospitalization)
  Sender: FDA-Public Use
  Company Number: US-BAXTER-2008BH013374

PATIENT
  Age: 52 Year
  Sex: Male

DRUGS (1)
  1. DIANEAL [Suspect]
     Indication: RENAL FAILURE CHRONIC
     Route: 033
     Dates: start: 20080922, end: 20080101

REACTIONS (2)
  - HEPATIC FAILURE [None]
  - THERMAL BURN [None]
